FAERS Safety Report 9109367 (Version 3)
Quarter: 2013Q2

REPORT INFORMATION
  Report Type: Spontaneous
  Country: US (occurrence: US)
  Receive Date: 20130222
  Receipt Date: 20130417
  Transmission Date: 20140414
  Serious: Yes (Hospitalization)
  Sender: FDA-Public Use
  Company Number: US-JNJFOC-20130207573

PATIENT
  Age: 33 Year
  Sex: Female

DRUGS (3)
  1. EVICEL [Suspect]
     Indication: GASTROINTESTINAL ANASTOMOTIC LEAK
     Route: 061
  2. EVICEL [Suspect]
     Indication: HAEMOSTASIS
     Route: 061
  3. LOCAL HAEMOSTATICS [Concomitant]
     Indication: HAEMOSTASIS
     Route: 065

REACTIONS (3)
  - Small intestinal obstruction [Recovered/Resolved]
  - Adhesion [Recovered/Resolved]
  - Off label use [Recovered/Resolved]
